FAERS Safety Report 7544141-9 (Version None)
Quarter: 2011Q2

REPORT INFORMATION
  Report Type: 
  Country: None (occurrence: None)
  Receive Date: 20110613
  Receipt Date: 20060420
  Transmission Date: 20111010
  Serious: Yes (Hospitalization, Other)
  Sender: FDA-Public Use
  Company Number: PHHO2005CA11019

PATIENT
  Sex: Female

DRUGS (7)
  1. TRACLEER [Concomitant]
  2. PREDNISONE [Concomitant]
  3. SANDOSTATIN LAR [Suspect]
     Dosage: 20 MG, QMO
     Dates: start: 20060223, end: 20060323
  4. SANDOSTATIN LAR [Suspect]
     Indication: SCLERODERMA
     Dosage: 20 MG, Q4W
     Dates: start: 20050609, end: 20051101
  5. DOMPERIDONE [Concomitant]
  6. PANTOLOC ^BYK GULDEN^ [Concomitant]
  7. ROCALTROL [Concomitant]

REACTIONS (10)
  - WHITE BLOOD CELL COUNT INCREASED [None]
  - FLUID RETENTION [None]
  - MUSCLE ATROPHY [None]
  - VOMITING [None]
  - OEDEMA PERIPHERAL [None]
  - BONE DENSITY DECREASED [None]
  - PYREXIA [None]
  - BACTERIAL INFECTION [None]
  - DIARRHOEA [None]
  - WEIGHT DECREASED [None]
